FAERS Safety Report 11499228 (Version 2)
Quarter: 2015Q3

REPORT INFORMATION
  Report Type: Spontaneous
  Country: GB (occurrence: GB)
  Receive Date: 20150913
  Receipt Date: 20150918
  Transmission Date: 20151125
  Serious: Yes (Death)
  Sender: FDA-Public Use
  Company Number: PHHY2015GB110344

PATIENT
  Age: 48 Year
  Sex: Female

DRUGS (4)
  1. COTRIMOXAZOLE [Concomitant]
     Active Substance: SULFAMETHOXAZOLE\TRIMETHOPRIM
     Indication: PROPHYLAXIS
     Route: 065
  2. PREDNISOLONE. [Suspect]
     Active Substance: PREDNISOLONE
     Indication: ALLERGIC GRANULOMATOUS ANGIITIS
     Dosage: 50 MG, UNK
     Route: 065
  3. MYCOPHENOLATE MOFETIL. [Suspect]
     Active Substance: MYCOPHENOLATE MOFETIL
     Indication: ALLERGIC GRANULOMATOUS ANGIITIS
     Dosage: UNK
     Route: 065
  4. CICLOSPORIN [Suspect]
     Active Substance: CYCLOSPORINE
     Indication: ALLERGIC GRANULOMATOUS ANGIITIS
     Dosage: UNK
     Route: 065

REACTIONS (7)
  - Diplopia [Fatal]
  - Leukocytosis [Fatal]
  - Central nervous system lymphoma [Fatal]
  - Epstein-Barr virus infection [Fatal]
  - IIIrd nerve paralysis [Fatal]
  - Pyrexia [Fatal]
  - Depressed level of consciousness [Fatal]
